FAERS Safety Report 6760523-7 (Version None)
Quarter: 2010Q2

REPORT INFORMATION
  Report Type: 
  Country: None (occurrence: None)
  Receive Date: 20100607
  Receipt Date: 20100607
  Transmission Date: 20101027
  Serious: Yes (Hospitalization)
  Sender: FDA-Public Use
  Company Number: None

PATIENT
  Age: 38 Year
  Sex: Male
  Weight: 86.1834 kg

DRUGS (1)
  1. CHANTIX [Suspect]
     Indication: SMOKING CESSATION THERAPY
     Dosage: 1MG? DAILY PO
     Route: 048
     Dates: start: 20091022, end: 20091115

REACTIONS (4)
  - ANGER [None]
  - INTENTIONAL SELF-INJURY [None]
  - LACERATION [None]
  - PSYCHOTIC DISORDER [None]
